FAERS Safety Report 26166188 (Version 1)
Quarter: 2025Q4

REPORT INFORMATION
  Report Type: Spontaneous
  Country: EU (occurrence: EU)
  Receive Date: 20251216
  Receipt Date: 20251216
  Transmission Date: 20260118
  Serious: Yes (Hospitalization)
  Sender: CHEPLAPHARM
  Company Number: None

PATIENT
  Age: 31 Year
  Sex: Female

DRUGS (5)
  1. OLANZAPINE [Suspect]
     Active Substance: OLANZAPINE
     Dosage: 7 TABLETS
  2. KETAMINE [Suspect]
     Active Substance: KETAMINE
     Dosage: 0.5 G
  3. XANAX [Suspect]
     Active Substance: ALPRAZOLAM
     Dosage: 28 TABLETS
  4. CANNABIS SATIVA SUBSP. INDICA TOP [Suspect]
     Active Substance: CANNABIS SATIVA SUBSP. INDICA TOP
  5. ALCOHOL [Suspect]
     Active Substance: ALCOHOL

REACTIONS (5)
  - Substance use disorder [Unknown]
  - Poisoning [Recovered/Resolved]
  - Altered state of consciousness [Recovered/Resolved]
  - Urinary retention [Unknown]
  - Agitation [Unknown]
